FAERS Safety Report 11163561 (Version 1)
Quarter: 2015Q2

REPORT INFORMATION
  Report Type: Spontaneous
  Country: US (occurrence: US)
  Receive Date: 20150604
  Receipt Date: 20150604
  Transmission Date: 20150821
  Serious: Yes (Other)
  Sender: FDA-Public Use
  Company Number: US-SA-2015SA013190

PATIENT
  Sex: Female

DRUGS (6)
  1. LEVEMIR [Concomitant]
     Active Substance: INSULIN DETEMIR
  2. PREDNISONE. [Suspect]
     Active Substance: PREDNISONE
     Indication: CATARACT OPERATION
     Route: 065
     Dates: start: 201411
  3. HUMULIN N [Concomitant]
     Active Substance: INSULIN HUMAN
  4. LANTUS [Suspect]
     Active Substance: INSULIN GLARGINE
     Indication: DIABETES MELLITUS
     Route: 065
     Dates: start: 2005
  5. LANTUS [Suspect]
     Active Substance: INSULIN GLARGINE
     Indication: DIABETES MELLITUS
     Dosage: INCREASED DOSE
     Route: 065
  6. LANTUS [Suspect]
     Active Substance: INSULIN GLARGINE
     Indication: DIABETES MELLITUS
     Dosage: INCREASED DOSE
     Route: 065

REACTIONS (2)
  - Blood glucose increased [Recovered/Resolved]
  - Cataract operation [Unknown]

NARRATIVE: CASE EVENT DATE: 20141110
